FAERS Safety Report 5564358-2 (Version None)
Quarter: 2007Q4

REPORT INFORMATION
  Report Type: 
  Country: None (occurrence: None)
  Receive Date: 20071218
  Receipt Date: 20071212
  Transmission Date: 20080405
  Serious: Yes (Death, Hospitalization, Other)
  Sender: FDA-Public Use
  Company Number: PHHO2007US18504

PATIENT
  Age: 60 Year
  Sex: Female
  Weight: 48.979 kg

DRUGS (6)
  1. GLEEVEC [Suspect]
     Indication: NON-SMALL CELL LUNG CANCER
     Dosage: 400MG
     Route: 048
     Dates: start: 20071119
  2. GLEEVEC [Suspect]
     Dosage: 400 MG, QD
     Route: 048
     Dates: start: 20071022, end: 20071026
  3. GLEEVEC [Suspect]
     Dosage: NO TREATMENT
     Dates: start: 20071027, end: 20071028
  4. GLEEVEC [Suspect]
     Dosage: 400 MG, QD
     Route: 048
     Dates: start: 20071029, end: 20071102
  5. GEMCITABINE [Suspect]
     Indication: NON-SMALL CELL LUNG CANCER
     Dosage: 1050MG
     Route: 042
     Dates: start: 20071121
  6. GEMCITABINE [Suspect]
     Dosage: 1000MG/M2
     Route: 042
     Dates: start: 20071024

REACTIONS (21)
  - ASPIRATION PLEURAL CAVITY [None]
  - CELLULITIS [None]
  - CLOSTRIDIAL INFECTION [None]
  - DELIRIUM [None]
  - DIARRHOEA [None]
  - DYSPNOEA [None]
  - ERYTHEMA [None]
  - HAEMATURIA [None]
  - HAEMOGLOBIN DECREASED [None]
  - HYPOTENSION [None]
  - HYPOVOLAEMIA [None]
  - NEUTROPENIA [None]
  - OEDEMA PERIPHERAL [None]
  - PAIN IN EXTREMITY [None]
  - PLEURAL EFFUSION [None]
  - PNEUMONIA [None]
  - PYREXIA [None]
  - RESPIRATORY DISTRESS [None]
  - SKIN TIGHTNESS [None]
  - THROMBOCYTOPENIA [None]
  - UNRESPONSIVE TO STIMULI [None]
